FAERS Safety Report 23820155 (Version 1)
Quarter: 2024Q2

REPORT INFORMATION
  Report Type: Spontaneous
  Country: US (occurrence: None)
  Receive Date: 20240506
  Receipt Date: 20240506
  Transmission Date: 20240715
  Serious: Yes (Other)
  Sender: FDA-Public Use
  Company Number: 2024A102397

PATIENT
  Age: 983 Month
  Sex: Female

DRUGS (1)
  1. FARXIGA [Suspect]
     Active Substance: DAPAGLIFLOZIN PROPANEDIOL
     Route: 048

REACTIONS (10)
  - Necrosis [Unknown]
  - Femur fracture [Unknown]
  - Malaise [Unknown]
  - Hypersensitivity [Unknown]
  - Nasal congestion [Unknown]
  - Cough [Recovering/Resolving]
  - Salivary gland disorder [Unknown]
  - Groin pain [Unknown]
  - Micturition urgency [Not Recovered/Not Resolved]
  - Urinary incontinence [Unknown]

NARRATIVE: CASE EVENT DATE: 20240201
